FAERS Safety Report 5661423-6 (Version None)
Quarter: 2008Q1

REPORT INFORMATION
  Report Type: 
  Country: None (occurrence: None)
  Receive Date: 20080311
  Receipt Date: 20080228
  Transmission Date: 20080703
  Serious: Yes (Death, Hospitalization)
  Sender: FDA-Public Use
  Company Number: FR-PFIZER INC-2008019988

PATIENT
  Sex: Male

DRUGS (4)
  1. SU-011,248 [Suspect]
     Dates: start: 20071112, end: 20071205
  2. TAZOCILLINE [Concomitant]
  3. TOPALGIC [Concomitant]
  4. MOPRAL [Concomitant]

REACTIONS (2)
  - DEATH [None]
  - GENERAL PHYSICAL HEALTH DETERIORATION [None]
